FAERS Safety Report 10197882 (Version 1)
Quarter: 2014Q2

REPORT INFORMATION
  Report Type: Spontaneous
  Country: US (occurrence: US)
  Receive Date: 20140527
  Receipt Date: 20140527
  Transmission Date: 20141212
  Serious: No
  Sender: FDA-Public Use
  Company Number: US-NOVEN-13US006688

PATIENT
  Age: 11 Year
  Sex: Male

DRUGS (6)
  1. DAYTRANA [Suspect]
     Indication: ATTENTION DEFICIT/HYPERACTIVITY DISORDER
     Dosage: 10 MG, QD
     Route: 062
     Dates: start: 20130409
  2. DAYTRANA [Suspect]
     Dosage: 15 MG, QD
     Route: 062
  3. RITALIN [Concomitant]
     Indication: ATTENTION DEFICIT/HYPERACTIVITY DISORDER
     Dosage: 5 MG, QD
     Route: 048
  4. OMNARIS [Concomitant]
     Indication: HYPERSENSITIVITY
     Dosage: 50 MCG, QD
     Route: 045
  5. PATANASE [Concomitant]
     Indication: HYPERSENSITIVITY
     Dosage: 0.6 %, QD
     Route: 045
  6. LEXAPRO [Concomitant]
     Indication: AUTISM
     Dosage: 20 MG, QD
     Route: 048

REACTIONS (6)
  - Disturbance in attention [Recovered/Resolved]
  - Application site erythema [Not Recovered/Not Resolved]
  - Drug ineffective [Recovered/Resolved]
  - Drug prescribing error [Not Recovered/Not Resolved]
  - Wrong technique in drug usage process [Not Recovered/Not Resolved]
  - Product quality issue [Recovered/Resolved]
